FAERS Safety Report 8573657-1 (Version None)
Quarter: 2012Q3

REPORT INFORMATION
  Report Type: 
  Country: None (occurrence: None)
  Receive Date: 20120806
  Receipt Date: 20120803
  Transmission Date: 20120928
  Serious: No
  Sender: FDA-Public Use
  Company Number: US-BAYER-2012-078785

PATIENT
  Age: 58 Year
  Sex: Male

DRUGS (2)
  1. LEVITRA [Suspect]
     Indication: ERECTILE DYSFUNCTION
     Dosage: 10 MG, UNK
     Route: 048
     Dates: end: 20120726
  2. TERAZOSIN HYDROCHLORIDE [Concomitant]

REACTIONS (2)
  - HEADACHE [None]
  - DEAFNESS UNILATERAL [None]
